FAERS Safety Report 22540060 (Version 2)
Quarter: 2023Q2

REPORT INFORMATION
  Report Type: Spontaneous
  Country: MY (occurrence: MY)
  Receive Date: 20230609
  Receipt Date: 20230620
  Transmission Date: 20230722
  Serious: Yes (Hospitalization, Other)
  Sender: FDA-Public Use
  Company Number: MY-MLMSERVICE-20230524-4302873-1

PATIENT
  Age: 44 Year
  Sex: Female
  Weight: 60 kg

DRUGS (3)
  1. VELCADE [Suspect]
     Active Substance: BORTEZOMIB
     Indication: Plasma cell myeloma
     Dosage: 6 MILLIGRAM
     Route: 058
     Dates: start: 20210830, end: 20210913
  2. DEXAMETHASONE [Suspect]
     Active Substance: DEXAMETHASONE
     Indication: Plasma cell myeloma
     Dosage: 120 MILLIGRAM
     Route: 048
     Dates: start: 20210830, end: 20210913
  3. CYCLOPHOSPHAMIDE [Suspect]
     Active Substance: CYCLOPHOSPHAMIDE
     Indication: Plasma cell myeloma
     Dosage: 1500 MILLIGRAM
     Route: 048
     Dates: start: 20210830, end: 20210913

REACTIONS (3)
  - Febrile neutropenia [Recovered/Resolved]
  - COVID-19 [Recovered/Resolved]
  - Purulent discharge [Unknown]

NARRATIVE: CASE EVENT DATE: 20210914
